FAERS Safety Report 16355538 (Version 1)
Quarter: 2019Q2

REPORT INFORMATION
  Report Type: Spontaneous
  Country: US (occurrence: US)
  Receive Date: 20190525
  Receipt Date: 20190525
  Transmission Date: 20190711
  Serious: Yes (Death, Hospitalization)
  Sender: FDA-Public Use
  Company Number: PHHY2019US120333

PATIENT
  Age: 72 Year
  Sex: Female

DRUGS (1)
  1. ENOXAPARIN [Suspect]
     Active Substance: ENOXAPARIN
     Indication: PULMONARY EMBOLISM
     Dosage: 60 MG, BID
     Route: 058

REACTIONS (10)
  - Pulmonary embolism [Fatal]
  - Dyspnoea [Unknown]
  - Neurological decompensation [Fatal]
  - Acute respiratory failure [Unknown]
  - Hypoxia [Unknown]
  - Pulmonary haemorrhage [Fatal]
  - Hypotension [Unknown]
  - Multiple organ dysfunction syndrome [Fatal]
  - Haemoptysis [Unknown]
  - Pneumonia [Unknown]
